FAERS Safety Report 15365814 (Version 1)
Quarter: 2018Q3

REPORT INFORMATION
  Report Type: Spontaneous
  Country: US (occurrence: US)
  Receive Date: 20180910
  Receipt Date: 20180910
  Transmission Date: 20181010
  Serious: Yes (Hospitalization)
  Sender: FDA-Public Use
  Company Number: US-BAYER-2018-167235

PATIENT
  Age: 84 Year
  Sex: Male
  Weight: 102.99 kg

DRUGS (4)
  1. PLAVIX [Suspect]
     Active Substance: CLOPIDOGREL BISULFATE
     Indication: CEREBROVASCULAR ACCIDENT
     Dosage: 75 MG, QD
     Route: 048
     Dates: start: 20180705, end: 20180714
  2. ADENOVIRUS VACCINE [Suspect]
     Active Substance: ADENOVIRUS VACCINE
     Indication: PROSTATE CANCER
     Dosage: UNK, Q4WK
     Dates: start: 20180614
  3. ATORVASTATIN CALCIUM. [Concomitant]
     Active Substance: ATORVASTATIN CALCIUM
     Dosage: UNK
     Dates: start: 20180705
  4. BAYER LOW DOSE [Suspect]
     Active Substance: ASPIRIN
     Indication: CORONARY ARTERY DISEASE
     Dosage: 81 MG, QD
     Route: 048
     Dates: start: 20130513, end: 20180714

REACTIONS (4)
  - Dyspnoea [None]
  - Fatigue [None]
  - Confusional state [None]
  - Anaemia [Recovered/Resolved]

NARRATIVE: CASE EVENT DATE: 20180714
